FAERS Safety Report 10283101 (Version 1)
Quarter: 2014Q3

REPORT INFORMATION
  Report Type: Spontaneous
  Country: US (occurrence: None)
  Receive Date: 20140702
  Receipt Date: 20140702
  Transmission Date: 20150326
  Serious: Yes (Hospitalization)
  Sender: FDA-Public Use
  Company Number: None

PATIENT
  Age: 77 Year
  Sex: Female
  Weight: 65 kg

DRUGS (14)
  1. WARFARIN 2.5 MG TARO PHARMACEUTICALS [Suspect]
     Active Substance: WARFARIN
     Indication: THROMBOSIS PROPHYLAXIS
     Route: 048
     Dates: start: 20140507, end: 20140606
  2. ZYRTEC [Concomitant]
     Active Substance: CETIRIZINE HYDROCHLORIDE
  3. AMLODIPINE [Concomitant]
     Active Substance: AMLODIPINE BESYLATE
  4. VESICARE [Concomitant]
     Active Substance: SOLIFENACIN SUCCINATE
  5. QVAR [Concomitant]
     Active Substance: BECLOMETHASONE DIPROPIONATE
  6. LOSARTAN [Concomitant]
     Active Substance: LOSARTAN
  7. SINGULAIR [Concomitant]
     Active Substance: MONTELUKAST SODIUM
  8. KLOR-CON [Concomitant]
     Active Substance: POTASSIUM CHLORIDE
  9. WARFARIN [Concomitant]
     Active Substance: WARFARIN
  10. CYCLOSPORINE. [Concomitant]
     Active Substance: CYCLOSPORINE
  11. MYCOPHENOLATE MOFETIL. [Concomitant]
     Active Substance: MYCOPHENOLATE MOFETIL
  12. SOTALOL. [Concomitant]
     Active Substance: SOTALOL
  13. FUROSEMIDE. [Concomitant]
     Active Substance: FUROSEMIDE
  14. SIMVASTATIN. [Concomitant]
     Active Substance: SIMVASTATIN

REACTIONS (2)
  - International normalised ratio increased [None]
  - Dyspnoea [None]

NARRATIVE: CASE EVENT DATE: 20140630
